FAERS Safety Report 10764817 (Version 1)
Quarter: 2015Q1

REPORT INFORMATION
  Report Type: Spontaneous
  Country: US (occurrence: None)
  Receive Date: 20150204
  Receipt Date: 20150204
  Transmission Date: 20150721
  Serious: No
  Sender: FDA-Public Use
  Company Number: None

PATIENT

DRUGS (1)
  1. NOVO SEVEN [Suspect]
     Active Substance: COAGULATION FACTOR VIIA (RECOMBINANT)

REACTIONS (3)
  - Circumstance or information capable of leading to medication error [None]
  - Intercepted medication error [None]
  - Product label issue [None]
